FAERS Safety Report 6959266 (Version 2)
Quarter: 2013Q1

REPORT INFORMATION
  Report Type: Spontaneous
  Country: US (occurrence: CA)
  Receive Date: 20090402
  Receipt Date: 20130214
  Transmission Date: 20140127
  Serious: No
  Sender: FDA-Public Use
  Company Number: CA-B.I. PHARMACEUTICALS,INC./RIDGEFIELD-2009-BP-04030BP

PATIENT
  Sex: Male
  Weight: 80.7 kg

DRUGS (1)
  1. MIRAPEX [Suspect]
     Indication: PARKINSON^S DISEASE
     Route: 048
     Dates: start: 20010904, end: 20080506

REACTIONS (5)
  - Pathological gambling [Not Recovered/Not Resolved]
  - Compulsive shopping [Unknown]
  - Hypersexuality [Unknown]
  - Hypomania [Not Recovered/Not Resolved]
  - Emotional distress [Unknown]
